FAERS Safety Report 25196663 (Version 2)
Quarter: 2025Q2

REPORT INFORMATION
  Report Type: Spontaneous
  Country: FR (occurrence: FR)
  Receive Date: 20250415
  Receipt Date: 20250630
  Transmission Date: 20250717
  Serious: Yes (Death)
  Sender: TEVA
  Company Number: None

PATIENT
  Age: 10 Year
  Sex: Male
  Weight: 49 kg

DRUGS (3)
  1. METHOTREXATE [Suspect]
     Active Substance: METHOTREXATE
     Indication: T-cell type acute leukaemia
     Route: 042
     Dates: start: 20250214, end: 20250214
  2. METHOTREXATE [Suspect]
     Active Substance: METHOTREXATE
     Indication: T-cell type acute leukaemia
     Route: 037
     Dates: start: 20250215, end: 20250215
  3. PURINETHOL [Suspect]
     Active Substance: MERCAPTOPURINE
     Indication: T-cell type acute leukaemia
     Route: 065

REACTIONS (4)
  - Bone marrow failure [Fatal]
  - Renal failure [Fatal]
  - Cardiovascular insufficiency [Fatal]
  - Hyperlactacidaemia [Fatal]

NARRATIVE: CASE EVENT DATE: 20250201
